FAERS Safety Report 10037920 (Version 3)
Quarter: 2014Q2

REPORT INFORMATION
  Report Type: Report from Study
  Country: CA (occurrence: CA)
  Receive Date: 20140326
  Receipt Date: 20140415
  Transmission Date: 20141212
  Serious: Yes (Life-Threatening, Hospitalization, Other)
  Sender: FDA-Public Use
  Company Number: CA-ROCHE-1332129

PATIENT
  Age: 48 Year
  Sex: Male
  Weight: 92 kg

DRUGS (7)
  1. AVASTIN [Suspect]
     Indication: GLIOBLASTOMA
     Route: 042
     Dates: start: 20131223
  2. AVASTIN [Suspect]
     Route: 042
     Dates: start: 20140204
  3. AVASTIN [Suspect]
     Route: 042
     Dates: start: 20140226, end: 20140226
  4. DECADRON [Concomitant]
     Route: 065
     Dates: start: 20131128
  5. ZANTAC [Concomitant]
  6. TYLENOL [Concomitant]
     Dosage: PRN
     Route: 065
  7. RAMIPRIL [Concomitant]
     Indication: BLOOD PRESSURE INCREASED

REACTIONS (7)
  - Cerebral haemorrhage [Unknown]
  - Blood pressure increased [Not Recovered/Not Resolved]
  - Toxicity to various agents [Unknown]
  - Rash [Unknown]
  - Rash [Unknown]
  - Weight increased [Unknown]
  - Headache [Not Recovered/Not Resolved]
